FAERS Safety Report 22330989 (Version 1)
Quarter: 2023Q2

REPORT INFORMATION
  Report Type: Spontaneous
  Country: US (occurrence: None)
  Receive Date: 20230515
  Receipt Date: 20230515
  Transmission Date: 20230721
  Serious: Yes (Hospitalization)
  Sender: FDA-Public Use
  Company Number: None

PATIENT
  Age: 74 Year
  Sex: Male
  Weight: 85.5 kg

DRUGS (1)
  1. CABOMETYX [Suspect]
     Active Substance: CABOZANTINIB S-MALATE
     Indication: Renal cancer metastatic

REACTIONS (5)
  - Muscle spasms [None]
  - Gait disturbance [None]
  - Blood magnesium decreased [None]
  - Blood calcium decreased [None]
  - Calcium ionised decreased [None]

NARRATIVE: CASE EVENT DATE: 20230514
